FAERS Safety Report 10903745 (Version 1)
Quarter: 2015Q1

REPORT INFORMATION
  Report Type: Spontaneous
  Country: US (occurrence: None)
  Receive Date: 20150306
  Receipt Date: 20150306
  Transmission Date: 20150721
  Serious: Yes (Death)
  Sender: FDA-Public Use
  Company Number: 2015US001907

PATIENT
  Age: 66 Year
  Sex: Male

DRUGS (4)
  1. PREDNISONE. [Concomitant]
     Active Substance: PREDNISONE
  2. DOCETAXEL. [Concomitant]
     Active Substance: DOCETAXEL
  3. ELIGARD [Suspect]
     Active Substance: LEUPROLIDE ACETATE
     Indication: PROSTATE CANCER
  4. CARBOPLATIN. [Concomitant]
     Active Substance: CARBOPLATIN

REACTIONS (9)
  - Fungal test positive [None]
  - Respiratory failure [None]
  - Disorientation [None]
  - Anaemia [None]
  - Hypercapnia [None]
  - Hyponatraemia [None]
  - Effusion [None]
  - Pericarditis fungal [None]
  - Hypoxia [None]
